FAERS Safety Report 8997883 (Version 1)
Quarter: 2013Q1

REPORT INFORMATION
  Report Type: Spontaneous
  Country: US (occurrence: US)
  Receive Date: 20130104
  Receipt Date: 20130104
  Transmission Date: 20140127
  Serious: Yes (Hospitalization)
  Sender: FDA-Public Use
  Company Number: PHEH2012US019874

PATIENT
  Age: 52 Year
  Sex: Female

DRUGS (9)
  1. GILENYA [Suspect]
     Indication: MULTIPLE SCLEROSIS
     Dosage: 0.5 MG, QD
     Route: 048
     Dates: start: 20120123, end: 20120927
  2. GILENYA [Suspect]
     Dosage: 0.5 MG, QD
     Route: 048
     Dates: start: 20121113
  3. PROZAC [Concomitant]
  4. VITAMIN D [Concomitant]
  5. WARFARIN [Concomitant]
  6. TOPIRAMATE [Concomitant]
  7. TOVIAZ [Concomitant]
  8. NEXIUM                             /01479302/ [Concomitant]
  9. KLONOPIN [Concomitant]

REACTIONS (4)
  - Chest pain [Recovering/Resolving]
  - Dizziness [Recovering/Resolving]
  - Dyspnoea [Recovering/Resolving]
  - Coagulopathy [Recovering/Resolving]
